FAERS Safety Report 6752345-8 (Version None)
Quarter: 2010Q2

REPORT INFORMATION
  Report Type: 
  Country: None (occurrence: None)
  Receive Date: 20100601
  Receipt Date: 20100601
  Transmission Date: 20101027
  Serious: No
  Sender: FDA-Public Use
  Company Number: None

PATIENT
  Age: 44 Year
  Sex: Male

DRUGS (1)
  1. OMEPRAXOLE 40 MG SANDOZ [Suspect]
     Dosage: 40MG, TAKE 1 CAPSULE DAILY, ORAL ROUTE
     Route: 048
     Dates: start: 20091001, end: 20100101

REACTIONS (1)
  - DRUG EFFECT DECREASED [None]
